FAERS Safety Report 12635524 (Version 1)
Quarter: 2016Q3

REPORT INFORMATION
  Report Type: Spontaneous
  Country: US (occurrence: US)
  Receive Date: 20160809
  Receipt Date: 20160809
  Transmission Date: 20161109
  Serious: Yes (Other)
  Sender: FDA-Public Use
  Company Number: US-SAOL THERAPEUTICS-2016SAO00346

PATIENT
  Age: 45 Year
  Sex: Male

DRUGS (2)
  1. LIORESAL [Suspect]
     Active Substance: BACLOFEN
     Indication: MUSCLE SPASTICITY
     Dosage: 998 ?G, \DAY
     Route: 037
     Dates: end: 20151201
  2. LIORESAL [Suspect]
     Active Substance: BACLOFEN
     Indication: SPINAL CORD INJURY
     Dosage: 500 ?G, \DAY
     Route: 037
     Dates: start: 20151201

REACTIONS (7)
  - Drug withdrawal syndrome [Unknown]
  - Device malfunction [Unknown]
  - Therapeutic response decreased [Unknown]
  - Feeling hot [Unknown]
  - Erythema [Unknown]
  - Impaired healing [Unknown]
  - Flushing [Unknown]

NARRATIVE: CASE EVENT DATE: 20150702
